FAERS Safety Report 26052389 (Version 1)
Quarter: 2025Q4

REPORT INFORMATION
  Report Type: Spontaneous
  Country: US (occurrence: US)
  Receive Date: 20251117
  Receipt Date: 20251117
  Transmission Date: 20260118
  Serious: Yes (Life-Threatening, Hospitalization)
  Sender: AUROBINDO
  Company Number: US-MLMSERVICE-20251029-PI691114-00050-1

PATIENT
  Age: 71 Year

DRUGS (3)
  1. AMLODIPINE [Suspect]
     Active Substance: AMLODIPINE BESYLATE
     Indication: Product used for unknown indication
     Dosage: 870 MILLIGRAM (INTENTIONAL INGESTION OF 87 TABLETS OF 10 MG AMLODIPINE)
  2. HYDROCHLOROTHIAZIDE\LOSARTAN [Concomitant]
     Active Substance: HYDROCHLOROTHIAZIDE\LOSARTAN
     Indication: Product used for unknown indication
     Dosage: 90 DOSAGE FORM
  3. LEVOTHYROXINE [Concomitant]
     Active Substance: LEVOTHYROXINE
     Indication: Product used for unknown indication
     Dosage: UNK (20?30 TABLETS OF 175 MCG LEVOTHYROXINE)

REACTIONS (2)
  - Hypotension [Unknown]
  - Intentional overdose [Unknown]
